FAERS Safety Report 4926249-7 (Version None)
Quarter: 2006Q1

REPORT INFORMATION
  Report Type: 
  Country: None (occurrence: None)
  Receive Date: 20060228
  Receipt Date: 20051219
  Transmission Date: 20060701
  Serious: No
  Sender: FDA-Public Use
  Company Number: US-GLAXOSMITHKLINE-A0586287A

PATIENT
  Age: 62 Year
  Sex: Female

DRUGS (2)
  1. LAMICTAL [Suspect]
     Indication: DRUG USE FOR UNKNOWN INDICATION
     Dosage: 100MG TWICE PER DAY
     Route: 048
  2. KLONOPIN [Concomitant]
     Route: 065

REACTIONS (3)
  - ALOPECIA [None]
  - MYALGIA [None]
  - NAUSEA [None]
